FAERS Safety Report 6097444-1 (Version None)
Quarter: 2009Q1

REPORT INFORMATION
  Report Type: 
  Country: None (occurrence: None)
  Receive Date: 20090227
  Receipt Date: 20080702
  Transmission Date: 20090719
  Serious: No
  Sender: FDA-Public Use
  Company Number: A0727311A

PATIENT
  Sex: Female

DRUGS (1)
  1. IMITREX [Suspect]
     Indication: MIGRAINE
     Dosage: 6MG AS DIRECTED
     Route: 058
     Dates: start: 20080420, end: 20080420

REACTIONS (5)
  - DRUG INEFFECTIVE [None]
  - FEELING HOT [None]
  - FLUSHING [None]
  - INJECTION SITE PAIN [None]
  - PRODUCT QUALITY ISSUE [None]
